FAERS Safety Report 13376333 (Version 2)
Quarter: 2017Q2

REPORT INFORMATION
  Report Type: Spontaneous
  Country: US (occurrence: US)
  Receive Date: 20170328
  Receipt Date: 20170407
  Transmission Date: 20170830
  Serious: Yes (Other)
  Sender: FDA-Public Use
  Company Number: US-ENDO PHARMACEUTICALS INC-2017-001400

PATIENT
  Age: 65 Year
  Sex: Male
  Weight: 81.63 kg

DRUGS (3)
  1. TESTOPEL [Suspect]
     Active Substance: TESTOSTERONE
     Indication: PRODUCT USED FOR UNKNOWN INDICATION
     Dosage: 12 PELLETS IMPLANTED INTO MIDDLE OF RIGHT BUTTOCKS
     Route: 065
     Dates: start: 20170317
  2. TESTOPEL [Suspect]
     Active Substance: TESTOSTERONE
     Dosage: 12 PELLETS IMPLANTED ^IN THE RIGHT AREA^
     Route: 065
  3. TESTOPEL [Suspect]
     Active Substance: TESTOSTERONE
     Dosage: UNKNOWN NUMBER OF PELLETS IMPLANTED INTO HIP
     Route: 065

REACTIONS (21)
  - Flushing [Unknown]
  - Stress [Unknown]
  - Swelling [Not Recovered/Not Resolved]
  - Headache [Unknown]
  - Pruritus [Unknown]
  - Gingival pain [Unknown]
  - Impatience [Unknown]
  - Feeling hot [Unknown]
  - Prescribed overdose [Not Recovered/Not Resolved]
  - Feeling abnormal [Not Recovered/Not Resolved]
  - Pain [Unknown]
  - Arthritis [Unknown]
  - Pain in extremity [Not Recovered/Not Resolved]
  - Peripheral swelling [Not Recovered/Not Resolved]
  - Drug administered at inappropriate site [Not Recovered/Not Resolved]
  - Malaise [Not Recovered/Not Resolved]
  - Muscle spasms [Not Recovered/Not Resolved]
  - Thrombosis [Unknown]
  - Gastrointestinal disorder [Unknown]
  - Arthralgia [Not Recovered/Not Resolved]
  - Confusional state [Unknown]

NARRATIVE: CASE EVENT DATE: 2017
